FAERS Safety Report 26025731 (Version 1)
Quarter: 2025Q4

REPORT INFORMATION
  Report Type: Spontaneous
  Country: US (occurrence: US)
  Receive Date: 20251111
  Receipt Date: 20251111
  Transmission Date: 20260117
  Serious: Yes (Other)
  Sender: NOVARTIS
  Company Number: US-002147023-NVSC2025US171654

PATIENT
  Age: 11 Year
  Sex: Female

DRUGS (4)
  1. ELTROMBOPAG [Suspect]
     Active Substance: ELTROMBOPAG
     Indication: Immune thrombocytopenia
     Dosage: UNK
     Route: 048
  2. ROMIPLOSTIM [Suspect]
     Active Substance: ROMIPLOSTIM
     Indication: Immune thrombocytopenia
     Dosage: UNK
     Route: 065
  3. Immunoglobulin [Concomitant]
     Indication: Immune thrombocytopenia
     Dosage: UNK
     Route: 065
  4. DEXAMETHASONE [Concomitant]
     Active Substance: DEXAMETHASONE
     Indication: Immune thrombocytopenia
     Dosage: 4-DAY BURST OF DEXAMETHASONE
     Route: 065

REACTIONS (4)
  - Cerebral venous sinus thrombosis [Recovering/Resolving]
  - Papilloedema [Recovering/Resolving]
  - Headache [Recovering/Resolving]
  - Drug ineffective [Unknown]
